FAERS Safety Report 24017913 (Version 3)
Quarter: 2025Q4

REPORT INFORMATION
  Report Type: Report from Study
  Country: US (occurrence: US)
  Receive Date: 20240627
  Receipt Date: 20251229
  Transmission Date: 20260118
  Serious: Yes (Other)
  Sender: JOHNSON AND JOHNSON
  Company Number: US-JNJFOC-20240649198

PATIENT
  Age: 58 Year
  Sex: Male

DRUGS (1)
  1. CILTACABTAGENE AUTOLEUCEL [Suspect]
     Active Substance: CILTACABTAGENE AUTOLEUCEL
     Indication: Plasma cell myeloma
     Dosage: INTERVAL FROM INFUSION TO DIAGNOSIS OF THE SUBSEQUENT NEOPLASM: 3 MONTH(S) 25 DAY(S)

REACTIONS (1)
  - Rectal cancer [Unknown]
